FAERS Safety Report 5246763-7 (Version None)
Quarter: 2007Q1

REPORT INFORMATION
  Report Type: 
  Country: None (occurrence: None)
  Receive Date: 20070226
  Receipt Date: 20070216
  Transmission Date: 20070707
  Serious: Yes (Hospitalization)
  Sender: FDA-Public Use
  Company Number: 2007AP00744

PATIENT
  Age: 20663 Day
  Sex: Female
  Weight: 69 kg

DRUGS (10)
  1. FASLODEX [Suspect]
     Indication: BREAST CANCER
     Route: 030
     Dates: start: 20060811, end: 20070126
  2. CONIEL [Concomitant]
     Indication: HYPERTENSION
     Route: 048
     Dates: start: 20050721, end: 20070127
  3. CONIEL [Concomitant]
     Route: 048
     Dates: start: 20070129
  4. ACTOS [Concomitant]
     Indication: DIABETES MELLITUS
     Route: 048
     Dates: start: 20060119, end: 20070125
  5. ACTOS [Concomitant]
     Route: 048
     Dates: start: 20070126, end: 20070127
  6. ACTOS [Concomitant]
     Route: 048
     Dates: start: 20070129
  7. LIPITOR [Concomitant]
     Indication: HYPERLIPIDAEMIA
     Route: 048
     Dates: start: 20060702, end: 20070127
  8. LIPITOR [Concomitant]
     Route: 048
     Dates: start: 20070129
  9. MELBIN [Concomitant]
     Indication: DIABETES MELLITUS
     Route: 048
     Dates: start: 20060721, end: 20070127
  10. MELBIN [Concomitant]
     Route: 048
     Dates: start: 20070129

REACTIONS (4)
  - BRAIN STEM INFARCTION [None]
  - CEREBRAL INFARCTION [None]
  - MITRAL VALVE INCOMPETENCE [None]
  - TRICUSPID VALVE INCOMPETENCE [None]
